FAERS Safety Report 9249033 (Version 1)
Quarter: 2013Q2

REPORT INFORMATION
  Report Type: Spontaneous
  Country: US (occurrence: None)
  Receive Date: 20130419
  Receipt Date: 20130419
  Transmission Date: 20140414
  Serious: Yes (Life-Threatening, Hospitalization)
  Sender: FDA-Public Use
  Company Number: None

PATIENT
  Age: 62 Year
  Sex: Male
  Weight: 103 kg

DRUGS (1)
  1. MORPHINE [Suspect]
     Indication: PAIN
     Route: 042
     Dates: start: 20121114, end: 20121114

REACTIONS (2)
  - Anaphylactic reaction [None]
  - Laryngospasm [None]
